FAERS Safety Report 6844637-9 (Version None)
Quarter: 2010Q3

REPORT INFORMATION
  Report Type: 
  Country: None (occurrence: None)
  Receive Date: 20100715
  Receipt Date: 20100701
  Transmission Date: 20110219
  Serious: Yes (Other)
  Sender: FDA-Public Use
  Company Number: GB-MERCK-1007USA00601

PATIENT
  Sex: Male

DRUGS (6)
  1. DECADRON [Suspect]
     Route: 048
  2. CHLORAMBUCIL [Suspect]
     Route: 065
  3. SULFAMETHOXAZOLE AND TRIMETHOPRIM [Suspect]
     Route: 065
  4. ETOPOSIDE [Suspect]
     Route: 065
  5. LOMUSTINE [Suspect]
     Route: 065
  6. ONDANSETRON [Suspect]
     Route: 065

REACTIONS (1)
  - CARDIOMYOPATHY [None]
